FAERS Safety Report 8257441-4 (Version None)
Quarter: 2012Q2

REPORT INFORMATION
  Report Type: 
  Country: None (occurrence: None)
  Receive Date: 20120403
  Receipt Date: 20120327
  Transmission Date: 20120825
  Serious: Yes (Hospitalization)
  Sender: FDA-Public Use
  Company Number: NL-ROCHE-1052982

PATIENT
  Sex: Male
  Weight: 73 kg

DRUGS (5)
  1. DEXAMETHASONE [Suspect]
     Indication: PRODUCT USED FOR UNKNOWN INDICATION
  2. NITROGLYCERIN [Suspect]
     Indication: NON-SMALL CELL LUNG CANCER
     Dosage: LAST DOSE PRIOR TO SAE: 12/MAR/2012
     Route: 062
     Dates: start: 20120213
  3. CARBOPLATIN [Suspect]
     Indication: NON-SMALL CELL LUNG CANCER
     Dosage: LAST DOSE PRIOR TO SAE: 12/MAR/2012
     Route: 042
     Dates: start: 20120213
  4. PACLITAXEL [Suspect]
     Indication: NON-SMALL CELL LUNG CANCER
     Dosage: LAST DOSE PRIOR TO SAE: 12/MAR/2012
     Route: 042
     Dates: start: 20120213
  5. AVASTIN [Suspect]
     Indication: NON-SMALL CELL LUNG CANCER
     Dosage: LAST DOSE PRIOR TO SAE: 12/MAR/2012
     Route: 042
     Dates: start: 20120213

REACTIONS (1)
  - APRAXIA [None]
